FAERS Safety Report 13078313 (Version 1)
Quarter: 2017Q1

REPORT INFORMATION
  Report Type: Spontaneous
  Country: US (occurrence: US)
  Receive Date: 20170102
  Receipt Date: 20170102
  Transmission Date: 20170428
  Serious: Yes (Hospitalization)
  Sender: FDA-Public Use
  Company Number: US-AUROBINDO-AUR-APL-2016-15879

PATIENT
  Age: 45 Year
  Sex: Female

DRUGS (1)
  1. LAMIVUDINE. [Suspect]
     Active Substance: LAMIVUDINE
     Indication: HEPATITIS B
     Route: 065

REACTIONS (8)
  - Lethargy [Unknown]
  - Pulmonary oedema [Recovered/Resolved]
  - Nausea [Unknown]
  - Pleuritic pain [Unknown]
  - Productive cough [Unknown]
  - Carnitine deficiency [Unknown]
  - Acute respiratory failure [Unknown]
  - Pulmonary congestion [Unknown]
